FAERS Safety Report 5892418-5 (Version None)
Quarter: 2008Q3

REPORT INFORMATION
  Report Type: 
  Country: None (occurrence: None)
  Receive Date: 20080923
  Receipt Date: 20080917
  Transmission Date: 20090109
  Serious: Yes (Death, Hospitalization)
  Sender: FDA-Public Use
  Company Number: US-JNJFOC-20080804087

PATIENT
  Age: 55 Year
  Sex: Female
  Weight: 61.24 kg

DRUGS (3)
  1. EXTRA STRENGTH TYLENOL [Suspect]
     Indication: DRUG USE FOR UNKNOWN INDICATION
  2. VODKA [Suspect]
     Indication: DRUG USE FOR UNKNOWN INDICATION
     Route: 048
  3. SLEEPING PILLS [Concomitant]
     Indication: SLEEP DISORDER THERAPY

REACTIONS (1)
  - ALCOHOL INTERACTION [None]
